FAERS Safety Report 20393025 (Version 7)
Quarter: 2022Q1

REPORT INFORMATION
  Report Type: Report from Study
  Country: CN (occurrence: None)
  Receive Date: 20220128
  Receipt Date: 20220330
  Transmission Date: 20220424
  Serious: Yes (Life-Threatening, Hospitalization)
  Sender: FDA-Public Use
  Company Number: CN-ROCHE-3012512

PATIENT
  Age: 68 Year
  Sex: Female
  Weight: 57 kg

DRUGS (5)
  1. ATEZOLIZUMAB [Suspect]
     Active Substance: ATEZOLIZUMAB
     Indication: Triple negative breast cancer
     Dosage: MOST RECENT DOSE OF ATEZOLIZUMAB PRIOR TO ADVERSE EVENT ONSET 4 JAN 2022 840 MG
     Route: 041
     Dates: start: 20211015
  2. PACLITAXEL [Suspect]
     Active Substance: PACLITAXEL
     Indication: Triple negative breast cancer
     Dosage: MOST RECENT DOSE OF PACLITAXEL PRIOR TO ADVERSE EVENT ONSET 28 DEC 2021 126.4 MG
     Route: 042
     Dates: start: 20211015
  3. EPIRUBICIN [Suspect]
     Active Substance: EPIRUBICIN
     Indication: Triple negative breast cancer
     Dosage: MOST RECENT DOSE OF EPIRUBICIN PRIOR TO ADVERSE EVENT ONSET 4 JAN 2022 140.4 MG?AS PER PROTOCOL (60
     Route: 042
     Dates: start: 20220104
  4. CYCLOPHOSPHAMIDE [Suspect]
     Active Substance: CYCLOPHOSPHAMIDE
     Indication: Triple negative breast cancer
     Dosage: MOST RECENT DOSE OF CYCLOPHOSPHAMIDE PRIOR TO ADVERSE EVENT ONSET 4 JAN 2022 936 MG
     Route: 042
     Dates: start: 20220104
  5. PEGFILGRASTIM [Suspect]
     Active Substance: PEGFILGRASTIM
     Indication: Triple negative breast cancer
     Dosage: ON 06/JAN/2022, RECEIVED MOST DOSE. ?CYCLE 4 VISIT 1
     Route: 058
     Dates: start: 20220106

REACTIONS (2)
  - Respiratory failure [Not Recovered/Not Resolved]
  - Pneumonia [Not Recovered/Not Resolved]

NARRATIVE: CASE EVENT DATE: 20220124
